FAERS Safety Report 9827173 (Version 1)
Quarter: 2013Q4

REPORT INFORMATION
  Report Type: Spontaneous
  Country: US (occurrence: None)
  Receive Date: 20131112
  Receipt Date: 20131112
  Transmission Date: 20140711
  Serious: Yes (Other)
  Sender: FDA-Public Use
  Company Number: US-013109

PATIENT
  Age: 58 Year
  Sex: Female
  Weight: 72.58 kg

DRUGS (1)
  1. PICO-SALAX (NOT SPECIFIED) [Suspect]
     Indication: BOWEL PREPARATION
     Dosage: (FIRST DOSE TO 03SEP2013 WAS AT 4:10)?
     Dates: end: 20130922

REACTIONS (3)
  - Feeling abnormal [None]
  - Abdominal distension [None]
  - Treatment noncompliance [None]
